FAERS Safety Report 4638223-9 (Version None)
Quarter: 2005Q2

REPORT INFORMATION
  Report Type: 
  Country: None (occurrence: None)
  Receive Date: 20050415
  Receipt Date: 20050331
  Transmission Date: 20051028
  Serious: Yes (Hospitalization)
  Sender: FDA-Public Use
  Company Number: ATO-05-0104

PATIENT
  Age: 74 Year
  Sex: Male

DRUGS (4)
  1. TRISENOX [Suspect]
     Indication: MYELODYSPLASTIC SYNDROME
     Dosage: 0.25 MG/KG (0.25 MG/KG, QD X 5D), IVI
     Route: 042
     Dates: start: 20050323, end: 20050327
  2. TRISENOX [Suspect]
     Indication: MYELODYSPLASTIC SYNDROME
     Dosage: 0.25 MG/KG (0.25 MG/KG, QD X 5D), IVI
     Route: 042
     Dates: start: 20050405, end: 20050412
  3. CYTARABINE [Suspect]
     Indication: MYELODYSPLASTIC SYNDROME
     Dosage: 10 MG/M2 (10 MG/M2, BID X 7D), IVI
     Route: 042
     Dates: start: 20050323, end: 20050329
  4. CYTARABINE [Suspect]
     Indication: MYELODYSPLASTIC SYNDROME
     Dosage: 10 MG/M2 (10 MG/M2, BID X 7D), IVI
     Route: 042
     Dates: start: 20050405, end: 20050412

REACTIONS (4)
  - HYPOTENSION [None]
  - INFECTION [None]
  - PNEUMONIA [None]
  - RENAL FAILURE [None]
